FAERS Safety Report 4503606-4 (Version None)
Quarter: 2004Q4

REPORT INFORMATION
  Report Type: 
  Country: None (occurrence: None)
  Receive Date: 20041117
  Receipt Date: 20041108
  Transmission Date: 20050328
  Serious: Yes (Hospitalization)
  Sender: FDA-Public Use
  Company Number: PHHO2004CH15760

PATIENT
  Sex: Female

DRUGS (2)
  1. TRILEPTAL [Suspect]
     Indication: PERSONALITY DISORDER
     Dosage: 150-450 MG/D
     Dates: start: 20040621
  2. RISPERDAL [Suspect]
     Indication: PERSONALITY DISORDER
     Dosage: 1MG/D
     Dates: start: 20040729, end: 20040810

REACTIONS (3)
  - BREAST PAIN [None]
  - DRUG INTERACTION [None]
  - GALACTORRHOEA [None]
